FAERS Safety Report 8208631-8 (Version None)
Quarter: 2012Q1

REPORT INFORMATION
  Report Type: 
  Country: None (occurrence: None)
  Receive Date: 20120314
  Receipt Date: 20120312
  Transmission Date: 20120608
  Serious: No
  Sender: FDA-Public Use
  Company Number: US-PFIZER INC-2012066005

PATIENT
  Sex: Female
  Weight: 100 kg

DRUGS (2)
  1. INDERAL LA [Suspect]
     Indication: MITRAL VALVE PROLAPSE
     Dosage: 60 MG, DAILY
     Route: 048
  2. ESTROGENS CONJUGATED [Concomitant]
     Indication: MENOPAUSE
     Dosage: 0.4 MG, 1X/DAY

REACTIONS (1)
  - PALPITATIONS [None]
